FAERS Safety Report 21968381 (Version 1)
Quarter: 2023Q1

REPORT INFORMATION
  Report Type: Spontaneous
  Country: US (occurrence: US)
  Receive Date: 20230208
  Receipt Date: 20230208
  Transmission Date: 20230418
  Serious: Yes (Other)
  Sender: FDA-Public Use
  Company Number: US-PFIZER INC-202300054536

PATIENT

DRUGS (1)
  1. MARCAINE [Suspect]
     Active Substance: BUPIVACAINE HYDROCHLORIDE
     Indication: Spinal anaesthesia
     Dosage: 1.6 ML (0.75%, 1.6MLS SPINAL INJECTION)

REACTIONS (1)
  - Drug effect less than expected [Unknown]

NARRATIVE: CASE EVENT DATE: 20230109
